FAERS Safety Report 6137431-8 (Version None)
Quarter: 2009Q1

REPORT INFORMATION
  Report Type: 
  Country: None (occurrence: None)
  Receive Date: 20090326
  Receipt Date: 20090318
  Transmission Date: 20090719
  Serious: No
  Sender: FDA-Public Use
  Company Number: 20096340

PATIENT
  Sex: Female

DRUGS (1)
  1. LIORESAL [Suspect]
     Indication: MUSCLE SPASTICITY
     Dosage: MCG, DAILY, INTRATHECAL
     Route: 037

REACTIONS (8)
  - DEVICE RELATED INFECTION [None]
  - FALL [None]
  - HAEMORRHAGE [None]
  - PAIN [None]
  - POCKET EROSION [None]
  - STAPHYLOCOCCAL INFECTION [None]
  - SWELLING [None]
  - WOUND DEHISCENCE [None]
